FAERS Safety Report 12909333 (Version 8)
Quarter: 2017Q3

REPORT INFORMATION
  Report Type: Report from Study
  Country: US (occurrence: US)
  Receive Date: 20161104
  Receipt Date: 20170725
  Transmission Date: 20171127
  Serious: Yes (Life-Threatening, Hospitalization)
  Sender: FDA-Public Use
  Company Number: US-BIOGEN-2016BI00312758

PATIENT
  Age: 39 Year
  Sex: Male
  Weight: 88.5 kg

DRUGS (9)
  1. DACLIZUMAB HYP [Suspect]
     Active Substance: DACLIZUMAB
     Indication: MULTIPLE SCLEROSIS
     Route: 058
     Dates: start: 20140228, end: 20160914
  2. BENADRYL [Concomitant]
     Active Substance: DIPHENHYDRAMINE HYDROCHLORIDE
     Indication: HYPERSENSITIVITY
  3. MIGRELIEF [Concomitant]
     Indication: MIGRAINE
     Route: 048
     Dates: start: 20160119
  4. BOSWELIA SERRATA [Concomitant]
     Indication: TENSION HEADACHE
     Route: 048
     Dates: start: 20160819
  5. INDOMETHACIN. [Concomitant]
     Active Substance: INDOMETHACIN
     Indication: MIGRAINE
     Route: 048
     Dates: start: 20160805
  6. SOLU-CORTEF [Concomitant]
     Active Substance: HYDROCORTISONE SODIUM SUCCINATE
     Indication: HYPERSENSITIVITY
  7. VITAMIN D [Concomitant]
     Active Substance: CHOLECALCIFEROL
     Indication: SUPPLEMENTATION THERAPY
     Route: 048
     Dates: start: 20140628
  8. NEUTRAGENA HAND CREAM [Concomitant]
     Indication: ECZEMA
     Route: 061
     Dates: start: 20151205
  9. CLARITINE [Concomitant]
     Active Substance: LORATADINE
     Indication: HYPERSENSITIVITY
     Route: 065

REACTIONS (1)
  - Haemolytic anaemia [Recovered/Resolved]

NARRATIVE: CASE EVENT DATE: 20161029
